APPROVED DRUG PRODUCT: TADALAFIL
Active Ingredient: TADALAFIL
Strength: 20MG
Dosage Form/Route: TABLET;ORAL
Application: A200630 | Product #001
Applicant: PHARMOBEDIENT CONSULTING LLC
Approved: Aug 3, 2018 | RLD: No | RS: No | Type: DISCN